FAERS Safety Report 20983189 (Version 3)
Quarter: 2022Q3

REPORT INFORMATION
  Report Type: Report from Study
  Country: CH (occurrence: CH)
  Receive Date: 20220620
  Receipt Date: 20220707
  Transmission Date: 20221027
  Serious: Yes (Hospitalization, Other)
  Sender: FDA-Public Use
  Company Number: CH-BRISTOL-MYERS SQUIBB COMPANY-2022-057664

PATIENT
  Age: 63 Year
  Sex: Female

DRUGS (5)
  1. LYMPHOCYTES [Suspect]
     Active Substance: LYMPHOCYTES
     Indication: Malignant melanoma
     Dosage: DOSE: 51.75X10^9
     Route: 042
     Dates: start: 20220512, end: 20220512
  2. ALDESLEUKIN [Suspect]
     Active Substance: ALDESLEUKIN
     Indication: Malignant melanoma
  3. FLUDARABINE [Suspect]
     Active Substance: FLUDARABINE PHOSPHATE
     Indication: Lymphodepletion
     Route: 042
     Dates: start: 20220507, end: 20220511
  4. CYCLOPHOSPHAMIDE [Suspect]
     Active Substance: CYCLOPHOSPHAMIDE
     Indication: Lymphodepletion
     Route: 042
     Dates: start: 20220505, end: 20220506
  5. NIVOLUMAB [Suspect]
     Active Substance: NIVOLUMAB
     Indication: Malignant melanoma

REACTIONS (2)
  - Device related infection [Recovered/Resolved]
  - Infection [Not Recovered/Not Resolved]

NARRATIVE: CASE EVENT DATE: 20220612
